FAERS Safety Report 9376069 (Version 2)
Quarter: 2013Q3

REPORT INFORMATION
  Report Type: Spontaneous
  Country: US (occurrence: US)
  Receive Date: 20130701
  Receipt Date: 20130729
  Transmission Date: 20140515
  Serious: Yes (Hospitalization)
  Sender: FDA-Public Use
  Company Number: US-009507513-1306USA012552

PATIENT
  Age: 64 Year
  Sex: Female

DRUGS (12)
  1. PEGINTRON [Suspect]
     Indication: HEPATITIS C
     Dosage: 120 MICROGRAM, REDIPEN
     Dates: start: 20130606
  2. REBETOL [Suspect]
     Dosage: UNK
     Route: 048
  3. AMLODIPINE [Concomitant]
  4. HYDROCHLOROTHIAZIDE [Concomitant]
  5. CARBAMAZEPINE [Concomitant]
  6. CYANOCOBALAMIN [Concomitant]
  7. VITAMIN D (UNSPECIFIED) [Concomitant]
  8. FLOVENT [Concomitant]
  9. SEREVENT [Concomitant]
  10. PROAIR (ALBUTEROL SULFATE) [Concomitant]
  11. FAMOTIDINE [Concomitant]
  12. VITAMINS (UNSPECIFIED) [Concomitant]

REACTIONS (15)
  - Asthma [Recovered/Resolved]
  - Dyspnoea [Recovered/Resolved]
  - Haemoglobin decreased [Recovered/Resolved]
  - Tremor [Not Recovered/Not Resolved]
  - Nausea [Not Recovered/Not Resolved]
  - Chills [Not Recovered/Not Resolved]
  - Feeling cold [Not Recovered/Not Resolved]
  - Eating disorder [Not Recovered/Not Resolved]
  - Dyspepsia [Not Recovered/Not Resolved]
  - Injection site reaction [Not Recovered/Not Resolved]
  - Erythema [Not Recovered/Not Resolved]
  - Contusion [Not Recovered/Not Resolved]
  - Blood potassium decreased [Not Recovered/Not Resolved]
  - Drug administration error [Unknown]
  - Asthenia [Not Recovered/Not Resolved]
